FAERS Safety Report 7760746-4 (Version None)
Quarter: 2011Q3

REPORT INFORMATION
  Report Type: 
  Country: None (occurrence: None)
  Receive Date: 20110919
  Receipt Date: 20110909
  Transmission Date: 20111222
  Serious: Yes (Hospitalization)
  Sender: FDA-Public Use
  Company Number: US-ASTRAZENECA-2011SE44792

PATIENT
  Age: 76 Year
  Sex: Female

DRUGS (2)
  1. SYMBICORT [Suspect]
     Indication: CHRONIC OBSTRUCTIVE PULMONARY DISEASE
     Dosage: TWO PUFFS TWICE DAILY
     Route: 055
  2. SYMBICORT [Suspect]
     Dosage: ONE PUFF TWICE A DAY
     Route: 055
     Dates: end: 20110725

REACTIONS (21)
  - BACK PAIN [None]
  - PAIN [None]
  - MALAISE [None]
  - HYPERHIDROSIS [None]
  - TONGUE DISORDER [None]
  - DYSPHONIA [None]
  - KNEE DEFORMITY [None]
  - ANKLE FRACTURE [None]
  - ASTHENIA [None]
  - VERTIGO [None]
  - ADVERSE DRUG REACTION [None]
  - FOREIGN BODY SENSATION IN EYES [None]
  - INSOMNIA [None]
  - PALPITATIONS [None]
  - SYNCOPE [None]
  - FATIGUE [None]
  - SOMNOLENCE [None]
  - OEDEMA [None]
  - LOWER LIMB FRACTURE [None]
  - NECK PAIN [None]
  - HEADACHE [None]
